FAERS Safety Report 9698920 (Version 1)
Quarter: 2013Q4

REPORT INFORMATION
  Report Type: Other
  Country: JP (occurrence: JP)
  Receive Date: 20131120
  Receipt Date: 20131120
  Transmission Date: 20140711
  Serious: Yes (Other)
  Sender: FDA-Public Use
  Company Number: JP-BRISTOL-MYERS SQUIBB COMPANY-19839208

PATIENT
  Age: 58 Year
  Sex: Male

DRUGS (2)
  1. ETOPOSIDE [Suspect]
     Indication: SMALL CELL CARCINOMA
     Dosage: REDUCED TO 135 MG FOR THREE DAYS
  2. CARBOPLATIN [Suspect]

REACTIONS (4)
  - Bone marrow toxicity [Unknown]
  - Febrile neutropenia [Unknown]
  - Renal impairment [Unknown]
  - Mucosal inflammation [Unknown]
